FAERS Safety Report 4690746-2 (Version None)
Quarter: 2005Q2

REPORT INFORMATION
  Report Type: 
  Country: None (occurrence: None)
  Receive Date: 20050614
  Receipt Date: 20050614
  Transmission Date: 20051028
  Serious: Yes (Hospitalization)
  Sender: FDA-Public Use
  Company Number: None

PATIENT
  Sex: Female

DRUGS (2)
  1. IMURAN [Suspect]
     Dosage: 25MG   DAILY   ORAL;  50MG   DAILY  ORAL
     Route: 048
     Dates: start: 20050307, end: 20050314
  2. IMURAN [Suspect]
     Dosage: 25MG   DAILY   ORAL;  50MG   DAILY  ORAL
     Route: 048
     Dates: start: 20050315, end: 20050328

REACTIONS (1)
  - APLASTIC ANAEMIA [None]
